FAERS Safety Report 6373793-4 (Version None)
Quarter: 2009Q3

REPORT INFORMATION
  Report Type: 
  Country: None (occurrence: None)
  Receive Date: 20090924
  Receipt Date: 20090604
  Transmission Date: 20100115
  Serious: No
  Sender: FDA-Public Use
  Company Number: US-ASTRAZENECA-2009UW14326

PATIENT
  Age: 55 Year
  Sex: Female

DRUGS (5)
  1. SEROQUEL [Suspect]
     Route: 048
  2. SEROQUEL [Suspect]
     Dosage: TITRATED TO 350MG
     Route: 048
  3. LITHIUM [Concomitant]
  4. LAMICTAL [Concomitant]
  5. ATIVAN [Concomitant]

REACTIONS (2)
  - BALANCE DISORDER [None]
  - TREMOR [None]
